FAERS Safety Report 5457472-3 (Version None)
Quarter: 2007Q3

REPORT INFORMATION
  Report Type: 
  Country: None (occurrence: None)
  Receive Date: 20070918
  Receipt Date: 20070307
  Transmission Date: 20080115
  Serious: Yes (Hospitalization)
  Sender: FDA-Public Use
  Company Number: US-ASTRAZENECA-2007UW04320

PATIENT
  Age: 51 Year
  Sex: Male

DRUGS (1)
  1. SEROQUEL [Suspect]
     Indication: BIPOLAR DISORDER
     Route: 048

REACTIONS (3)
  - OVERDOSE [None]
  - PSYCHOTIC DISORDER [None]
  - UNRESPONSIVE TO STIMULI [None]
